FAERS Safety Report 20263896 (Version 1)
Quarter: 2021Q4

REPORT INFORMATION
  Report Type: Spontaneous
  Country: US (occurrence: US)
  Receive Date: 20211231
  Receipt Date: 20211231
  Transmission Date: 20220303
  Serious: Yes (Hospitalization, Other)
  Sender: FDA-Public Use
  Company Number: US-LUPIN PHARMACEUTICALS INC.-2021-26202

PATIENT
  Age: 3 Decade
  Sex: Female

DRUGS (20)
  1. LEVETIRACETAM [Suspect]
     Active Substance: LEVETIRACETAM
     Indication: Seizure
     Dosage: UNK, HIGH-DOSE
     Route: 065
  2. CLOBAZAM [Suspect]
     Active Substance: CLOBAZAM
     Indication: Seizure
     Dosage: 20 MILLIGRAM, QD
     Route: 065
  3. LAMOTRIGINE [Suspect]
     Active Substance: LAMOTRIGINE
     Indication: Seizure
     Dosage: UNK, HIGH-DOSE
     Route: 065
  4. PHENYTOIN SODIUM [Suspect]
     Active Substance: PHENYTOIN SODIUM
     Indication: Seizure
     Dosage: UNK, HIGH-DOSE
     Route: 065
  5. HYDROXYCHLOROQUINE [Suspect]
     Active Substance: HYDROXYCHLOROQUINE
     Indication: Seizure
     Dosage: UNK
     Route: 065
  6. TOPIRAMATE [Suspect]
     Active Substance: TOPIRAMATE
     Indication: Seizure
     Dosage: 400 MILLIGRAM, QD
     Route: 065
  7. LACOSAMIDE [Suspect]
     Active Substance: LACOSAMIDE
     Indication: Seizure
     Dosage: 400 MILLIGRAM, QD
     Route: 065
  8. METHYLPREDNISOLONE [Suspect]
     Active Substance: METHYLPREDNISOLONE
     Indication: Immunomodulatory therapy
     Dosage: UNK, IMMUNE-MODULATORY THERAPY MONTHLY ALTERNATING IV IMMUNE GLOBULIN AND METHYLPREDNISOLONE
     Route: 065
  9. METHYLPREDNISOLONE [Suspect]
     Active Substance: METHYLPREDNISOLONE
     Indication: Seizure
  10. PRIVIGEN [Suspect]
     Active Substance: HUMAN IMMUNOGLOBULIN G
     Indication: Immunomodulatory therapy
     Dosage: UNK, IMMUNE-MODULATORY THERAPY MONTHLY ALTERNATING IV IMMUNE GLOBULIN AND METHYLPREDNISOLONE
     Route: 042
  11. CARBAMAZEPINE [Suspect]
     Active Substance: CARBAMAZEPINE
     Indication: Seizure
     Dosage: UNK, HIGH-DOSE
     Route: 065
  12. BRIVARACETAM [Suspect]
     Active Substance: BRIVARACETAM
     Indication: Seizure
     Dosage: UNK, HIGH-DOSE
     Route: 065
  13. FELBAMATE [Suspect]
     Active Substance: FELBAMATE
     Indication: Seizure
     Dosage: 2700 MILLIGRAM, QD
     Route: 065
  14. PERAMPANEL [Suspect]
     Active Substance: PERAMPANEL
     Indication: Seizure
     Dosage: UNK, HIGH-DOSE
     Route: 065
  15. VALPROATE [Suspect]
     Active Substance: VALPROIC ACID
     Indication: Seizure
     Dosage: UNK, HIGH-DOSE
     Route: 065
  16. METHOTREXATE [Suspect]
     Active Substance: METHOTREXATE
     Indication: Seizure
     Dosage: UNK
     Route: 065
  17. OXCARBAZEPINE [Suspect]
     Active Substance: OXCARBAZEPINE
     Indication: Seizure
     Dosage: UNK, HIGH-DOSE
     Route: 065
  18. RITUXIMAB [Suspect]
     Active Substance: RITUXIMAB
     Indication: Seizure
     Dosage: UNK
     Route: 065
  19. CANNABIDIOL [Suspect]
     Active Substance: CANNABIDIOL
     Indication: Status epilepticus
     Dosage: UNK
     Route: 065
  20. ANAKINRA [Suspect]
     Active Substance: ANAKINRA
     Indication: Status epilepticus
     Dosage: UNK
     Route: 065

REACTIONS (3)
  - Drug ineffective [Unknown]
  - Drug ineffective for unapproved indication [Unknown]
  - Off label use [Unknown]
